FAERS Safety Report 8060190-9 (Version None)
Quarter: 2012Q1

REPORT INFORMATION
  Report Type: 
  Country: None (occurrence: None)
  Receive Date: 20120119
  Receipt Date: 20120119
  Transmission Date: 20120608
  Serious: Yes (Hospitalization)
  Sender: FDA-Public Use
  Company Number: None

PATIENT
  Age: 72 Year
  Sex: Male
  Weight: 111.2 kg

DRUGS (4)
  1. LUTEIN [Concomitant]
  2. COUMADIN [Suspect]
     Indication: PULMONARY EMBOLISM
     Dosage: 5MG DAILY PO RECENT
     Route: 048
  3. COUMADIN [Suspect]
     Indication: DEEP VEIN THROMBOSIS
     Dosage: 5MG DAILY PO RECENT
     Route: 048
  4. METOPROLOL TARTRATE [Concomitant]

REACTIONS (2)
  - MUSCLE HAEMORRHAGE [None]
  - COUGH [None]
